FAERS Safety Report 20143865 (Version 1)
Quarter: 2021Q4

REPORT INFORMATION
  Report Type: Spontaneous
  Country: DE (occurrence: DE)
  Receive Date: 20211203
  Receipt Date: 20211203
  Transmission Date: 20220304
  Serious: Yes (Other)
  Sender: FDA-Public Use
  Company Number: None

PATIENT
  Age: 8 Year
  Sex: Female
  Weight: 38 kg

DRUGS (1)
  1. VINCRISTINE [Suspect]
     Active Substance: VINCRISTINE
     Indication: Nephroblastoma
     Dosage: ACCORDING TO THE MANUFACTURER
     Route: 042
     Dates: start: 201509, end: 201605

REACTIONS (10)
  - Polyneuropathy [Not Recovered/Not Resolved]
  - Sensory overload [Recovered/Resolved with Sequelae]
  - Paresis [Not Recovered/Not Resolved]
  - Illiteracy [Recovered/Resolved with Sequelae]
  - Memory impairment [Recovered/Resolved with Sequelae]
  - Learning disorder [Recovered/Resolved with Sequelae]
  - Cranial nerve disorder [Recovered/Resolved with Sequelae]
  - Illusion [Recovered/Resolved with Sequelae]
  - Illiteracy [Recovered/Resolved with Sequelae]
  - Central nervous system lesion [Recovered/Resolved with Sequelae]

NARRATIVE: CASE EVENT DATE: 20160501
